FAERS Safety Report 4394304-9 (Version None)
Quarter: 2004Q3

REPORT INFORMATION
  Report Type: 
  Country: None (occurrence: None)
  Receive Date: 20040707
  Receipt Date: 20040707
  Transmission Date: 20050211
  Serious: Yes (Hospitalization)
  Sender: FDA-Public Use
  Company Number: None

PATIENT
  Age: 55 Year
  Sex: Male
  Weight: 92.5338 kg

DRUGS (5)
  1. NORTRIPTYLINE HCL [Suspect]
     Indication: PYREXIA
     Dosage: 50 MG ORAL
     Route: 048
     Dates: start: 20040615, end: 20040621
  2. METFORMIN HCL [Concomitant]
  3. PLAVIX [Concomitant]
  4. ALTACE [Concomitant]
  5. MULTIVITS [Concomitant]

REACTIONS (2)
  - HEART RATE INCREASED [None]
  - PYREXIA [None]
